FAERS Safety Report 7421467-0 (Version None)
Quarter: 2011Q2

REPORT INFORMATION
  Report Type: 
  Country: None (occurrence: None)
  Receive Date: 20110418
  Receipt Date: 20110411
  Transmission Date: 20111010
  Serious: Yes (Death)
  Sender: FDA-Public Use
  Company Number: GB-JNJFOC-20110307443

PATIENT
  Age: 89 Year
  Sex: Female

DRUGS (14)
  1. ROPINIROLE [Suspect]
     Route: 048
  2. DIGOXIN [Concomitant]
     Indication: PRODUCT USED FOR UNKNOWN INDICATION
     Route: 048
  3. LACTULOSE [Concomitant]
     Indication: PRODUCT USED FOR UNKNOWN INDICATION
     Route: 048
  4. CARBIMAZOLE [Concomitant]
     Indication: PRODUCT USED FOR UNKNOWN INDICATION
     Route: 048
  5. FUROSEMIDE [Concomitant]
     Indication: PRODUCT USED FOR UNKNOWN INDICATION
     Route: 065
  6. SINEMET [Concomitant]
     Indication: PRODUCT USED FOR UNKNOWN INDICATION
     Route: 048
  7. FORTISIP [Concomitant]
     Indication: PRODUCT USED FOR UNKNOWN INDICATION
     Route: 048
  8. LEVODOPA [Concomitant]
     Indication: PARKINSON'S DISEASE
     Route: 065
  9. ASPIRIN [Concomitant]
     Indication: PRODUCT USED FOR UNKNOWN INDICATION
     Route: 048
  10. BISOPROLOL [Concomitant]
     Indication: PRODUCT USED FOR UNKNOWN INDICATION
     Route: 065
  11. ROPINIROLE [Suspect]
     Indication: PARKINSON'S DISEASE
     Route: 048
  12. IRON [Concomitant]
     Indication: PRODUCT USED FOR UNKNOWN INDICATION
     Route: 048
  13. RISPERIDONE [Suspect]
     Indication: PARKINSON'S DISEASE
     Route: 048
  14. CARBIDOPA [Concomitant]
     Indication: PARKINSON'S DISEASE
     Route: 065

REACTIONS (2)
  - DEATH [None]
  - WRONG DRUG ADMINISTERED [None]
